FAERS Safety Report 8007665-6 (Version None)
Quarter: 2011Q4

REPORT INFORMATION
  Report Type: 
  Country: None (occurrence: None)
  Receive Date: 20111227
  Receipt Date: 20110830
  Transmission Date: 20120403
  Serious: Yes (Other)
  Sender: FDA-Public Use
  Company Number: US-ABBOTT-11P-163-0850752-00

PATIENT
  Sex: Male
  Weight: 88.53 kg

DRUGS (3)
  1. UNKNOWN MEDICATION [Concomitant]
     Indication: HYPERTENSION
  2. LUPRON DEPOT [Suspect]
     Indication: PROSTATOMEGALY
     Dosage: TOTAL OF 4 SHOTS
     Route: 030
     Dates: start: 20100501, end: 20101101
  3. LUPRON DEPOT [Suspect]
     Indication: PROSTATOMEGALY
     Route: 030
     Dates: start: 20110201, end: 20110201

REACTIONS (4)
  - DRUG INEFFECTIVE [None]
  - GYNAECOMASTIA [None]
  - PAIN IN EXTREMITY [None]
  - HOT FLUSH [None]
